FAERS Safety Report 9969105 (Version 1)
Quarter: 2014Q1

REPORT INFORMATION
  Report Type: Report from Study
  Country: US (occurrence: US)
  Receive Date: 20140306
  Receipt Date: 20140306
  Transmission Date: 20141002
  Serious: No
  Sender: FDA-Public Use
  Company Number: US-ABBVIE-13P-163-1141989-00

PATIENT
  Sex: Female

DRUGS (11)
  1. HUMIRA [Suspect]
     Indication: ANKYLOSING SPONDYLITIS
     Dates: start: 201211
  2. METOFORMIN [Concomitant]
     Indication: DIABETES MELLITUS
  3. KLOR-CON [Concomitant]
     Indication: HYPOKALAEMIA
  4. PATANASE [Concomitant]
     Indication: HYPERSENSITIVITY
     Dosage: 1-2 TIMES A DAY AS NEEDED
  5. PROBIOTIC OVER THE COUNTER [Concomitant]
     Indication: GASTROINTESTINAL DISORDER
  6. ZEGERID [Concomitant]
     Indication: GASTROOESOPHAGEAL REFLUX DISEASE
  7. VITAMIN [Concomitant]
     Indication: VITAMIN SUPPLEMENTATION
  8. LABETALOL [Concomitant]
     Indication: BLOOD PRESSURE
  9. VITAMIN D [Concomitant]
     Indication: VITAMIN SUPPLEMENTATION
  10. LOSARTAN [Concomitant]
     Indication: PRODUCT USED FOR UNKNOWN INDICATION
     Dosage: 100 MG DAILY
  11. IRON [Concomitant]
     Indication: PRODUCT USED FOR UNKNOWN INDICATION
     Dosage: 65 MG DAILY

REACTIONS (4)
  - Fatigue [Not Recovered/Not Resolved]
  - Poor quality sleep [Not Recovered/Not Resolved]
  - Hypersensitivity [Not Recovered/Not Resolved]
  - Nasopharyngitis [Not Recovered/Not Resolved]
